FAERS Safety Report 9734506 (Version 1)
Quarter: 2013Q4

REPORT INFORMATION
  Report Type: Spontaneous
  Country: US (occurrence: US)
  Receive Date: 20131206
  Receipt Date: 20131206
  Transmission Date: 20140711
  Serious: Yes (Hospitalization)
  Sender: FDA-Public Use
  Company Number: US-BIOGENIDEC-2013BI115720

PATIENT
  Age: 70 Year
  Sex: Male

DRUGS (9)
  1. AVONEX [Suspect]
     Indication: MULTIPLE SCLEROSIS
     Route: 030
     Dates: start: 20080205
  2. AMPYRA [Concomitant]
  3. B-100 [Concomitant]
  4. CALTRATE 600 + D [Concomitant]
  5. CENTRUM [Concomitant]
  6. COSOPT [Concomitant]
  7. LEVOTHYROXINE SODIUM [Concomitant]
  8. RESTASIS [Concomitant]
  9. XALATAN [Concomitant]

REACTIONS (1)
  - Dehydration [Unknown]
